FAERS Safety Report 23268067 (Version 1)
Quarter: 2023Q4

REPORT INFORMATION
  Report Type: Spontaneous
  Country: US (occurrence: None)
  Receive Date: 20231205
  Receipt Date: 20231205
  Transmission Date: 20240110
  Serious: Yes (Other)
  Sender: FDA-Public Use
  Company Number: None

PATIENT
  Age: 89 Year
  Sex: Female
  Weight: 50.35 kg

DRUGS (11)
  1. ZENPEP [Suspect]
     Active Substance: PANCRELIPASE AMYLASE\PANCRELIPASE LIPASE\PANCRELIPASE PROTEASE
     Indication: Pancreatic enzymes
     Dosage: OTHER STRENGTH : 40000 USP UNITS;?FREQUENCY : BEFORE MEALS;?
     Route: 048
  2. ZENPEP [Suspect]
     Active Substance: PANCRELIPASE AMYLASE\PANCRELIPASE LIPASE\PANCRELIPASE PROTEASE
     Indication: Diarrhoea
  3. SIMVASTATIN [Concomitant]
     Active Substance: SIMVASTATIN
  4. ALPRAZOLAM [Concomitant]
     Active Substance: ALPRAZOLAM
  5. RAMIPRIL [Concomitant]
     Active Substance: RAMIPRIL
  6. METFORMIN [Concomitant]
     Active Substance: METFORMIN HYDROCHLORIDE
  7. RAMIPRIL [Concomitant]
     Active Substance: RAMIPRIL
  8. PROBIOTICS NOS [Concomitant]
     Active Substance: PROBIOTICS NOS
  9. Centrum Vitamins [Concomitant]
  10. MAGNESIUM [Concomitant]
     Active Substance: MAGNESIUM
  11. Calcium w/ Vitamin D3-Plus [Concomitant]

REACTIONS (8)
  - Throat tightness [None]
  - Apnoea [None]
  - Blindness transient [None]
  - Dizziness [None]
  - Heart rate increased [None]
  - Blood pressure systolic increased [None]
  - Blood pressure diastolic increased [None]
  - Pruritus [None]

NARRATIVE: CASE EVENT DATE: 20231012
